FAERS Safety Report 4939397-2 (Version None)
Quarter: 2006Q1

REPORT INFORMATION
  Report Type: 
  Country: None (occurrence: None)
  Receive Date: 20060224
  Receipt Date: 20060224
  Transmission Date: 20060701
  Serious: Yes (Other)
  Sender: FDA-Public Use
  Company Number: 2006029564

PATIENT
  Age: 27 Year
  Sex: Female
  Weight: 55 kg

DRUGS (6)
  1. XANAX [Suspect]
     Indication: ILL-DEFINED DISORDER
     Dosage: 1 MG (O.5 MG, UNKNOWN), ORAL
     Route: 048
     Dates: start: 20050914
  2. FLUCONAZOLE [Suspect]
     Indication: VAGINAL CANDIDIASIS
     Dosage: 150 MG (UNKNOWN), ORAL
     Route: 048
     Dates: start: 20050926, end: 20050926
  3. ALL OTHER THERAPEUTIC PRODUCTS (ALL OTHER THERAPEUTIC PRODUCTS) [Concomitant]
  4. DESLORATADINE (DESLORATADINE) [Concomitant]
  5. ECONAZOLE (ECONAZOLE) [Concomitant]
  6. PAROXETINE HCL [Concomitant]

REACTIONS (8)
  - DIZZINESS [None]
  - DRUG INTERACTION [None]
  - DYSPNOEA [None]
  - ERYTHEMA [None]
  - MUSCULOSKELETAL STIFFNESS [None]
  - MYOCLONUS [None]
  - TREMOR [None]
  - VASOCONSTRICTION [None]
